FAERS Safety Report 9409552 (Version 1)
Quarter: 2013Q2

REPORT INFORMATION
  Report Type: Spontaneous
  Country: US (occurrence: US)
  Receive Date: 20130424
  Receipt Date: 20130424
  Transmission Date: 20140414
  Serious: Yes (Hospitalization)
  Sender: FDA-Public Use
  Company Number: 2013-126

PATIENT
  Age: 47 Year
  Sex: Female

DRUGS (2)
  1. FAZACLO (CLOZAPINE, USP) ODT (ORAL DISINTEGRATING TABLET) [Suspect]
     Indication: SCHIZOPHRENIA
     Route: 048
     Dates: start: 20100415, end: 20111221
  2. CLOZAPINE [Suspect]
     Indication: SCHIZOPHRENIA
     Route: 048
     Dates: start: 20111222, end: 201303

REACTIONS (3)
  - Delusion [None]
  - Treatment noncompliance [None]
  - Dysgeusia [None]
